FAERS Safety Report 9999019 (Version 1)
Quarter: 2014Q1

REPORT INFORMATION
  Report Type: Spontaneous
  Country: US (occurrence: US)
  Receive Date: 20140312
  Receipt Date: 20140312
  Transmission Date: 20141002
  Serious: Yes (Other)
  Sender: FDA-Public Use
  Company Number: US-AMGEN-USASP2014016780

PATIENT
  Age: 40 Year
  Sex: Female

DRUGS (1)
  1. NEUPOGEN [Suspect]
     Indication: PROPHYLAXIS
     Dosage: UNK UNK, QD
     Route: 065

REACTIONS (3)
  - Caesarean section [Unknown]
  - Premature delivery [Unknown]
  - Nasopharyngitis [Not Recovered/Not Resolved]
